FAERS Safety Report 5836293-3 (Version None)
Quarter: 2008Q3

REPORT INFORMATION
  Report Type: 
  Country: None (occurrence: None)
  Receive Date: 20080801
  Receipt Date: 20080507
  Transmission Date: 20090109
  Serious: Yes (Hospitalization)
  Sender: FDA-Public Use
  Company Number: 170668USA

PATIENT
  Age: 86 Year
  Sex: Female

DRUGS (7)
  1. ZOLPIDEM TARTRATE [Suspect]
     Indication: INSOMNIA
     Dosage: QHS (10 MG,1 IN 1 D),ORAL
     Route: 048
     Dates: start: 20080403, end: 20080403
  2. GLIPIZIDE [Concomitant]
  3. OMEPRAZOLE [Concomitant]
  4. SIMVASTATIN [Concomitant]
  5. ISOSORBIDE DINITRATE [Concomitant]
  6. METOPROLOL SUCCINATE [Concomitant]
  7. RIVASTIGMINE TARTRATE [Concomitant]

REACTIONS (4)
  - ASTHENIA [None]
  - DIZZINESS [None]
  - FLUID RETENTION [None]
  - LOSS OF CONSCIOUSNESS [None]
